FAERS Safety Report 4975785-6 (Version None)
Quarter: 2006Q2

REPORT INFORMATION
  Report Type: 
  Country: None (occurrence: None)
  Receive Date: 20060418
  Receipt Date: 20060116
  Transmission Date: 20061013
  Serious: Yes (Hospitalization)
  Sender: FDA-Public Use
  Company Number: JP-BOEHRINGER INGELHEIM PHARMACEUTICALS, INC.-2006-BP-00524NB

PATIENT
  Age: 68 Year
  Sex: Male

DRUGS (7)
  1. MICARDIS [Suspect]
     Indication: HYPERTENSION
     Route: 048
     Dates: start: 20050916, end: 20051112
  2. CATAPRES [Concomitant]
     Indication: HYPERTENSION
     Route: 048
     Dates: start: 20000908
  3. BASEN [Concomitant]
     Indication: DIABETES MELLITUS
     Route: 048
     Dates: start: 20050203
  4. CALTAN (PRECIPITATED CALCIUM CARBONATE) [Concomitant]
     Indication: RENAL FAILURE
     Route: 048
     Dates: start: 20011231
  5. ADONA [Concomitant]
     Indication: RETINAL HAEMORRHAGE
     Route: 048
     Dates: start: 20040116
  6. TRANSAMIN [Concomitant]
     Indication: RETINAL HAEMORRHAGE
     Route: 048
     Dates: start: 20040116
  7. SELBEX [Concomitant]
     Indication: GASTRIC ULCER
     Route: 048
     Dates: start: 20040611

REACTIONS (2)
  - HEPATIC FUNCTION ABNORMAL [None]
  - JAUNDICE [None]
